FAERS Safety Report 8368252-3 (Version None)
Quarter: 2012Q2

REPORT INFORMATION
  Report Type: 
  Country: None (occurrence: None)
  Receive Date: 20120517
  Receipt Date: 20120511
  Transmission Date: 20120825
  Serious: Yes (Other)
  Sender: FDA-Public Use
  Company Number: GB-MERCK-1205USA02283

PATIENT
  Age: 74 Year
  Sex: Female
  Weight: 71 kg

DRUGS (6)
  1. BENDROFLUAZIDE TABLETS [Concomitant]
     Indication: HYPERTENSION
     Route: 048
     Dates: start: 19990101
  2. CALCICHEW D3 [Concomitant]
     Route: 048
     Dates: start: 20090101
  3. CANDESARTAN [Concomitant]
     Indication: HYPERTENSION
     Route: 048
     Dates: start: 20080101
  4. FOSAMAX [Suspect]
     Indication: OSTEOPOROSIS
     Route: 048
     Dates: start: 20090202, end: 20120420
  5. ASPIRIN [Concomitant]
     Indication: AMAUROSIS FUGAX
     Route: 048
     Dates: start: 19990101
  6. LEVOTHYROXINE SODIUM [Concomitant]
     Indication: HYPOTHYROIDISM
     Route: 048
     Dates: start: 19980101

REACTIONS (1)
  - VISION BLURRED [None]
